FAERS Safety Report 24453694 (Version 2)
Quarter: 2024Q4

REPORT INFORMATION
  Report Type: Report from Study
  Country: US (occurrence: US)
  Receive Date: 20241017
  Receipt Date: 20241018
  Transmission Date: 20250115
  Serious: No
  Sender: ROCHE
  Company Number: US-ROCHE-3374054

PATIENT
  Age: 52 Year
  Sex: Male
  Weight: 72.57 kg

DRUGS (2)
  1. RITUXAN [Suspect]
     Active Substance: RITUXIMAB
     Indication: Nephritic syndrome
     Dosage: INFUSE 1000MG ON DAY 1, DAY 15 AND THEN EVERY 6 MONTHS?DATE OF SERVICE: 10/JUN/2022 (VIAL, 1000MG)
     Route: 042
  2. AVASTIN [Suspect]
     Active Substance: BEVACIZUMAB
     Indication: Product used for unknown indication
     Dosage: DATE OF SERVICE: 08/APR/2024
     Route: 065

REACTIONS (3)
  - Vascular rupture [Unknown]
  - Off label use [Unknown]
  - Off label use [Unknown]

NARRATIVE: CASE EVENT DATE: 20230401
